FAERS Safety Report 5398652-5 (Version None)
Quarter: 2007Q3

REPORT INFORMATION
  Report Type: 
  Country: None (occurrence: None)
  Receive Date: 20070726
  Receipt Date: 20070301
  Transmission Date: 20080115
  Serious: Yes (Hospitalization)
  Sender: FDA-Public Use
  Company Number: US-AMGEN-US213375

PATIENT
  Sex: Male

DRUGS (14)
  1. EPOGEN [Suspect]
     Indication: RENAL FAILURE CHRONIC
     Route: 065
  2. PLAVIX [Concomitant]
  3. ATORVASTATIN CALCIUM [Concomitant]
  4. HUMULIN 70/30 [Concomitant]
  5. METOPROLOL SUCCINATE [Concomitant]
  6. POTASSIUM CHLORIDE [Concomitant]
  7. RENAGEL [Concomitant]
  8. DIOVAN [Concomitant]
  9. THIAMINE [Concomitant]
  10. FOLIC ACID [Concomitant]
  11. GABAPENTIN [Concomitant]
  12. LACTULOSE [Concomitant]
  13. REGLAN [Concomitant]
  14. PROTONIX [Concomitant]

REACTIONS (1)
  - ACUTE MYOCARDIAL INFARCTION [None]
